FAERS Safety Report 8594536-X (Version None)
Quarter: 2012Q3

REPORT INFORMATION
  Report Type: 
  Country: None (occurrence: None)
  Receive Date: 20120815
  Receipt Date: 20120809
  Transmission Date: 20120928
  Serious: Yes (Other)
  Sender: FDA-Public Use
  Company Number: BR-US-EMD SERONO, INC.-7134673

PATIENT
  Sex: Female

DRUGS (7)
  1. TEGRETOL [Concomitant]
     Indication: MULTIPLE SCLEROSIS
  2. CRESTOR [Concomitant]
     Indication: BLOOD CHOLESTEROL INCREASED
  3. PREMATIM [Concomitant]
     Indication: HORMONE REPLACEMENT THERAPY
  4. BISOPROLOL FUMARATE [Concomitant]
     Indication: ARRHYTHMIA
  5. VENALET [Concomitant]
     Indication: VARICOSE VEIN
  6. REBIF [Suspect]
     Indication: RELAPSING-REMITTING MULTIPLE SCLEROSIS
     Dates: start: 20120521, end: 20120704
  7. ZETIA [Concomitant]
     Indication: BLOOD CHOLESTEROL INCREASED

REACTIONS (6)
  - MICTURITION URGENCY [None]
  - NASOPHARYNGITIS [None]
  - MOTOR DYSFUNCTION [None]
  - FACIAL PAIN [None]
  - GAMMA-GLUTAMYLTRANSFERASE INCREASED [None]
  - HEADACHE [None]
